FAERS Safety Report 25495792 (Version 1)
Quarter: 2025Q2

REPORT INFORMATION
  Report Type: Spontaneous
  Country: US (occurrence: US)
  Receive Date: 20250630
  Receipt Date: 20250630
  Transmission Date: 20250716
  Serious: No
  Sender: SANOFI AVENTIS
  Company Number: US-SA-2025SA180467

PATIENT
  Age: 71 Year
  Sex: Male

DRUGS (20)
  1. DUPIXENT [Suspect]
     Active Substance: DUPILUMAB
     Indication: Chronic obstructive pulmonary disease
     Dosage: 300 MG, QOW
     Route: 058
     Dates: start: 2025
  2. ALBUTEROL SULFATE [Concomitant]
     Active Substance: ALBUTEROL SULFATE
  3. ATENOLOL [Concomitant]
     Active Substance: ATENOLOL
  4. BROVANA [Concomitant]
     Active Substance: ARFORMOTEROL TARTRATE
  5. BUDESONIDE [Concomitant]
     Active Substance: BUDESONIDE
  6. CLOBETASOL [Concomitant]
     Active Substance: CLOBETASOL
  7. ERYTHROMYCIN [Concomitant]
     Active Substance: ERYTHROMYCIN
  8. FEXOFENADINE [Concomitant]
     Active Substance: FEXOFENADINE HYDROCHLORIDE
  9. FLUCONAZOLE [Concomitant]
     Active Substance: FLUCONAZOLE
  10. GABAPENTIN [Concomitant]
     Active Substance: GABAPENTIN
  11. ATROPINE SULFATE\DIPHENOXYLATE HYDROCHLORIDE\NEOMYCIN SULFATE [Concomitant]
     Active Substance: ATROPINE SULFATE\DIPHENOXYLATE HYDROCHLORIDE\NEOMYCIN SULFATE
  12. OXYCODONE [Concomitant]
     Active Substance: OXYCODONE
  13. PRAMIPEXOLE [Concomitant]
     Active Substance: PRAMIPEXOLE
  14. PREDNISONE [Concomitant]
     Active Substance: PREDNISONE
  15. PRILOSEC OTC [Concomitant]
     Active Substance: OMEPRAZOLE MAGNESIUM
  16. ROFLUMILAST [Concomitant]
     Active Substance: ROFLUMILAST
  17. SIMVASTATIN [Concomitant]
     Active Substance: SIMVASTATIN
  18. TAMSULOSIN [Concomitant]
     Active Substance: TAMSULOSIN
  19. TRIAMTERENE [Concomitant]
     Active Substance: TRIAMTERENE
  20. YUPELRI [Concomitant]
     Active Substance: REVEFENACIN

REACTIONS (2)
  - Nausea [Not Recovered/Not Resolved]
  - Decreased appetite [Not Recovered/Not Resolved]
